FAERS Safety Report 4544038-2 (Version None)
Quarter: 2005Q1

REPORT INFORMATION
  Report Type: 
  Country: None (occurrence: None)
  Receive Date: 20050104
  Receipt Date: 20041209
  Transmission Date: 20050727
  Serious: Yes (Death, Hospitalization)
  Sender: FDA-Public Use
  Company Number: DE-MERCK-0412DEU00086

PATIENT
  Age: 74 Year
  Sex: Male

DRUGS (1)
  1. VIOXX [Suspect]
     Indication: MUSCULOSKELETAL PAIN
     Route: 048
     Dates: start: 20010101

REACTIONS (4)
  - ATHEROSCLEROSIS [None]
  - CORONARY ARTERY DISEASE [None]
  - MYOCARDIAL INFARCTION [None]
  - PERIPHERAL OCCLUSIVE DISEASE [None]
